FAERS Safety Report 23738136 (Version 1)
Quarter: 2024Q2

REPORT INFORMATION
  Report Type: Report from Study
  Country: CO (occurrence: CO)
  Receive Date: 20240412
  Receipt Date: 20240412
  Transmission Date: 20240716
  Serious: Yes (Other)
  Sender: FDA-Public Use
  Company Number: CO-ASTELLAS-2024US007489

PATIENT
  Age: 46 Year
  Sex: Male

DRUGS (2)
  1. TACROLIMUS [Suspect]
     Active Substance: TACROLIMUS
     Indication: Renal transplant
     Route: 048
     Dates: start: 20180729
  2. TACROLIMUS [Suspect]
     Active Substance: TACROLIMUS
     Dosage: 6 MG, ONCE DAILY (1 MG (1 CAPSULE) AND 5 MG (1 CAPSULE))
     Route: 048

REACTIONS (7)
  - Macule [Not Recovered/Not Resolved]
  - Fungal skin infection [Unknown]
  - Immunosuppressant drug level decreased [Recovering/Resolving]
  - Lip dry [Not Recovered/Not Resolved]
  - Dry skin [Not Recovered/Not Resolved]
  - Skin exfoliation [Not Recovered/Not Resolved]
  - Pruritus [Not Recovered/Not Resolved]

NARRATIVE: CASE EVENT DATE: 20230101
